FAERS Safety Report 6148440-7 (Version None)
Quarter: 2009Q2

REPORT INFORMATION
  Report Type: 
  Country: None (occurrence: None)
  Receive Date: 20090406
  Receipt Date: 20090326
  Transmission Date: 20091009
  Serious: Yes (Other)
  Sender: FDA-Public Use
  Company Number: 2009SP006679

PATIENT
  Age: 49 Year
  Sex: Male

DRUGS (3)
  1. NITROGLYCERIN [Suspect]
     Indication: FROSTBITE
     Dosage: 10 MG; ; TDER
     Route: 062
  2. NITROGLYCERIN [Suspect]
     Indication: OFF LABEL USE
     Dosage: 10 MG; ; TDER
     Route: 062
  3. NITROGLYCERIN [Suspect]
     Indication: PROPHYLAXIS
     Dosage: 10 MG; ; TDER
     Route: 062

REACTIONS (5)
  - ALTERED STATE OF CONSCIOUSNESS [None]
  - ATAXIA [None]
  - BRAIN OEDEMA [None]
  - MALAISE [None]
  - OFF LABEL USE [None]
